FAERS Safety Report 18544185 (Version 1)
Quarter: 2020Q4

REPORT INFORMATION
  Report Type: Report from Study
  Country: US (occurrence: US)
  Receive Date: 20201125
  Receipt Date: 20201125
  Transmission Date: 20210114
  Serious: Yes (Other)
  Sender: FDA-Public Use
  Company Number: US-GILEAD-2020-0505210

PATIENT
  Age: 61 Year
  Sex: Male

DRUGS (10)
  1. CIPRODEX [Concomitant]
     Active Substance: CIPROFLOXACIN HYDROCHLORIDE\DEXAMETHASONE
  2. COLISTIN [Concomitant]
     Active Substance: COLISTIN
  3. SODIUM CHLORIDE. [Concomitant]
     Active Substance: SODIUM CHLORIDE
  4. AZITHROMYCIN ANHYDROUS. [Concomitant]
     Active Substance: AZITHROMYCIN ANHYDROUS
  5. FIASP [Concomitant]
     Active Substance: INSULIN ASPART
  6. LEVALBUTEROL [LEVOSALBUTAMOL] [Concomitant]
     Active Substance: LEVALBUTEROL
  7. AZTREONAM LYSINE [Suspect]
     Active Substance: AZTREONAM LYSINE
     Indication: CYSTIC FIBROSIS
     Dosage: 75 MG, TID, FOR 14 DAYS TO ALTERNATE EVERY 2 WEEKS WITH COLISTIN NEBS
     Route: 055
  8. OFLOXACIN. [Concomitant]
     Active Substance: OFLOXACIN
  9. ZENPEP [Concomitant]
     Active Substance: PANCRELIPASE AMYLASE\PANCRELIPASE LIPASE\PANCRELIPASE PROTEASE
  10. LEVOFLOXACIN. [Concomitant]
     Active Substance: LEVOFLOXACIN

REACTIONS (2)
  - Pneumonia [Unknown]
  - Off label use [Unknown]

NARRATIVE: CASE EVENT DATE: 20201102
